FAERS Safety Report 5242030-6 (Version None)
Quarter: 2007Q1

REPORT INFORMATION
  Report Type: 
  Country: None (occurrence: None)
  Receive Date: 20070220
  Receipt Date: 20070212
  Transmission Date: 20070707
  Serious: Yes (Hospitalization)
  Sender: FDA-Public Use
  Company Number: US-ELI_LILLY_AND_COMPANY-US200702003052

PATIENT
  Age: 36 Year
  Sex: Female

DRUGS (7)
  1. CYMBALTA [Suspect]
     Dosage: 60 MG, UNK
     Dates: start: 20060601
  2. CYMBALTA [Suspect]
     Dosage: 30 MG, DAILY (1/D)
     Dates: start: 20060703, end: 20060911
  3. CYMBALTA [Suspect]
     Dosage: 60 MG, DAILY (1/D)
     Dates: start: 20060912, end: 20070205
  4. LITHIUM CARBONATE [Concomitant]
     Indication: BIPOLAR DISORDER
     Dates: end: 20070205
  5. CLONAZEPAM [Concomitant]
     Dates: end: 20070205
  6. METHADONE HCL [Concomitant]
     Indication: BACK PAIN
     Dates: end: 20070205
  7. LORTAB [Concomitant]
     Dosage: 500 MG, AS NEEDED
     Dates: end: 20070205

REACTIONS (2)
  - DIPLOPIA [None]
  - HEPATITIS ACUTE [None]
